FAERS Safety Report 8262001-5 (Version None)
Quarter: 2012Q1

REPORT INFORMATION
  Report Type: 
  Country: None (occurrence: None)
  Receive Date: 20120327
  Receipt Date: 20090423
  Transmission Date: 20120608
  Serious: Yes (Other)
  Sender: FDA-Public Use
  Company Number: PHEH2009US02655

PATIENT
  Sex: Female

DRUGS (2)
  1. FUROSEMIDE (FUROSEMIDE) [Suspect]
     Dosage: 20 MG
  2. GLEEVEC [Suspect]
     Dosage: 400 MG

REACTIONS (2)
  - EYE SWELLING [None]
  - DEHYDRATION [None]
